FAERS Safety Report 19991116 (Version 2)
Quarter: 2021Q4

REPORT INFORMATION
  Report Type: Spontaneous
  Country: US (occurrence: None)
  Receive Date: 20211025
  Receipt Date: 20211130
  Transmission Date: 20220303
  Serious: Yes (Hospitalization)
  Sender: FDA-Public Use
  Company Number: 2021A780625

PATIENT
  Age: 66 Year
  Sex: Male
  Weight: 79.4 kg

DRUGS (1)
  1. CALQUENCE [Suspect]
     Active Substance: ACALABRUTINIB
     Indication: Non-Hodgkin^s lymphoma recurrent
     Route: 048
     Dates: start: 20200918, end: 202009

REACTIONS (10)
  - Malnutrition [Recovered/Resolved]
  - Nausea [Recovered/Resolved]
  - Vomiting [Recovered/Resolved]
  - Weight decreased [Unknown]
  - Constipation [Recovered/Resolved]
  - Drug ineffective [Unknown]
  - Product use issue [Unknown]
  - Diarrhoea [Recovered/Resolved]
  - Blood sodium decreased [Unknown]
  - Inappropriate antidiuretic hormone secretion [Unknown]

NARRATIVE: CASE EVENT DATE: 20200901
